FAERS Safety Report 4814640-9 (Version None)
Quarter: 2005Q4

REPORT INFORMATION
  Report Type: 
  Country: None (occurrence: None)
  Receive Date: 20051028
  Receipt Date: 20051020
  Transmission Date: 20060501
  Serious: Yes (Hospitalization)
  Sender: FDA-Public Use
  Company Number: 420104

PATIENT
  Age: 81 Year
  Sex: Male

DRUGS (8)
  1. CARVEDILOL [Suspect]
     Indication: HYPERTENSIVE HEART DISEASE
     Dosage: 2.5MG TWICE PER DAY
     Route: 048
     Dates: start: 20031204
  2. ALLOPURINOL [Concomitant]
     Dates: start: 19991214
  3. ASPIRIN [Concomitant]
     Dates: start: 20010313, end: 20040602
  4. DIOVAN [Concomitant]
     Dates: start: 20020312
  5. CARDENALIN [Concomitant]
     Dates: start: 20020312
  6. ALDACTONE [Concomitant]
     Dates: start: 20031028
  7. ADALAT [Concomitant]
     Dates: start: 19991214
  8. LASIX [Concomitant]
     Dates: start: 20031028

REACTIONS (1)
  - CARDIAC FAILURE [None]
